FAERS Safety Report 13020406 (Version 1)
Quarter: 2016Q4

REPORT INFORMATION
  Report Type: Spontaneous
  Country: US (occurrence: US)
  Receive Date: 20161212
  Receipt Date: 20161212
  Transmission Date: 20170207
  Serious: No
  Sender: FDA-Public Use
  Company Number: US-TEIKOKU PHARMA USA-TPU2016-00825

PATIENT
  Age: 61 Year
  Sex: Male
  Weight: 79.45 kg

DRUGS (3)
  1. LIDODERM [Suspect]
     Active Substance: LIDOCAINE
     Indication: INTERVERTEBRAL DISC PROTRUSION
  2. IBUPROFEN. [Concomitant]
     Active Substance: IBUPROFEN
     Indication: PAIN
     Dosage: ONE 200MG TABLET AS NEEDED BY MOUTH, TAKES^ ON AND OFF^
     Route: 048
     Dates: start: 20161124
  3. LIDODERM [Suspect]
     Active Substance: LIDOCAINE
     Indication: BACK DISORDER
     Route: 061

REACTIONS (3)
  - Insomnia [Unknown]
  - Expired product administered [Recovered/Resolved]
  - Diplopia [Unknown]

NARRATIVE: CASE EVENT DATE: 20161201
